FAERS Safety Report 15708562 (Version 2)
Quarter: 2019Q1

REPORT INFORMATION
  Report Type: Report from Study
  Country: US (occurrence: US)
  Receive Date: 20181211
  Receipt Date: 20190218
  Transmission Date: 20190417
  Serious: No
  Sender: FDA-Public Use
  Company Number: PHEH2018US051904

PATIENT
  Sex: Male

DRUGS (3)
  1. LASIX [Concomitant]
     Active Substance: FUROSEMIDE
     Indication: PRODUCT USED FOR UNKNOWN INDICATION
     Dosage: UNK UNK, QOD
     Route: 065
  2. ENTRESTO [Suspect]
     Active Substance: SACUBITRIL\VALSARTAN
     Indication: CARDIAC FAILURE
     Dosage: 1 DF (97 MG SACUBITRIL/ 103 MG VALSARTAN), BID
     Route: 048
     Dates: start: 20160603
  3. LASIX [Concomitant]
     Active Substance: FUROSEMIDE
     Dosage: 20 MG, QD
     Route: 065

REACTIONS (4)
  - Sleep apnoea syndrome [Unknown]
  - Chronic obstructive pulmonary disease [Unknown]
  - Fluid retention [Recovering/Resolving]
  - Cough [Recovering/Resolving]
